FAERS Safety Report 19513057 (Version 3)
Quarter: 2021Q3

REPORT INFORMATION
  Report Type: Spontaneous
  Country: US (occurrence: US)
  Receive Date: 20210709
  Receipt Date: 20210827
  Transmission Date: 20211014
  Serious: No
  Sender: FDA-Public Use
  Company Number: US-PFIZER INC-2021682356

PATIENT
  Age: 41 Year
  Sex: Female
  Weight: 57.61 kg

DRUGS (3)
  1. DEPO?PROVERA [Suspect]
     Active Substance: MEDROXYPROGESTERONE ACETATE
     Indication: CONTRACEPTION
     Dosage: SINGLE (104MG/0.65ML)
     Dates: start: 20210603
  2. LISINOPRIL. [Concomitant]
     Active Substance: LISINOPRIL
     Indication: HYPERTENSION
     Dosage: 10 MG, 1X/DAY(TAKE ONCE DAILY)
     Route: 048
     Dates: start: 20160720
  3. ADDERALL [Concomitant]
     Active Substance: AMPHETAMINE ASPARTATE\AMPHETAMINE SULFATE\DEXTROAMPHETAMINE SACCHARATE\DEXTROAMPHETAMINE SULFATE
     Indication: ATTENTION DEFICIT HYPERACTIVITY DISORDER
     Dosage: 20 MG, 1X/DAY (TAKE ONCE DAILY )
     Route: 048

REACTIONS (1)
  - Syringe issue [Recovered/Resolved]

NARRATIVE: CASE EVENT DATE: 20210603
